FAERS Safety Report 18376273 (Version 1)
Quarter: 2020Q4

REPORT INFORMATION
  Report Type: Spontaneous
  Country: US (occurrence: US)
  Receive Date: 20201011
  Receipt Date: 20201011
  Transmission Date: 20210114
  Serious: Yes (Other)
  Sender: FDA-Public Use
  Company Number: None

PATIENT
  Age: 70 Year
  Sex: Female
  Weight: 40.5 kg

DRUGS (6)
  1. SCHIFF MOVE FREE [Concomitant]
     Active Substance: DIETARY SUPPLEMENT
  2. ESTROGEN PATCH PROGESERONE [Concomitant]
  3. CALCIUM [Concomitant]
     Active Substance: CALCIUM
  4. VIT D [Concomitant]
     Active Substance: VITAMIN D NOS
  5. PROLIA [Suspect]
     Active Substance: DENOSUMAB
     Indication: OSTEOPOROSIS
     Dosage: ?          OTHER FREQUENCY:EVERY 6 MOS.;?
     Route: 058
  6. MULTIPLE VITAMIN [Concomitant]
     Active Substance: VITAMINS

REACTIONS (4)
  - Tooth extraction [None]
  - Infection [None]
  - Osteonecrosis of jaw [None]
  - Procedural pain [None]

NARRATIVE: CASE EVENT DATE: 20200929
